FAERS Safety Report 15301036 (Version 6)
Quarter: 2022Q3

REPORT INFORMATION
  Report Type: Report from Study
  Country: JP (occurrence: None)
  Receive Date: 20180821
  Receipt Date: 20220704
  Transmission Date: 20221026
  Serious: Yes (Hospitalization)
  Sender: FDA-Public Use
  Company Number: JP-ROCHE-2170845

PATIENT
  Age: 66 Year
  Sex: Female
  Weight: 44 kg

DRUGS (19)
  1. ATEZOLIZUMAB [Suspect]
     Active Substance: ATEZOLIZUMAB
     Indication: Ovarian cancer
     Dosage: DATE OF MOST RECENT DOSE OF ATEZOLIZUMAB/PLACEBO PRIOR TO AE ONSET 08 AUG 2018?ADMINISTERED ON ON DA
     Route: 041
     Dates: start: 20180427
  2. BEVACIZUMAB [Suspect]
     Active Substance: BEVACIZUMAB
     Indication: Ovarian cancer
     Dosage: DOSE OF LAST BEVACIZUMAB ADMINISTERED PRIOR TO AE ONSET: 652 MG?DATE OF MOST RECENT DOSE OF BEVACIZU
     Route: 042
     Dates: start: 20180518
  3. PACLITAXEL [Suspect]
     Active Substance: PACLITAXEL
     Indication: Ovarian cancer
     Dosage: DOSE OF LAST PACLITAXEL ADMINISTERED PRIOR TO AE ONSET: 243 MG?DATE OF MOST RECENT DOSE OF PACLITAXE
     Route: 042
     Dates: start: 20180427
  4. CARBOPLATIN [Suspect]
     Active Substance: CARBOPLATIN
     Indication: Ovarian cancer
     Dosage: DOSE OF LAST CARBOPLATIN ADMINISTERED PRIOR TO AE ONSET: 425 MG?DATE OF MOST RECENT DOSE OF CARBOPLA
     Route: 042
     Dates: start: 20180427
  5. MAGNESIUM OXIDE [Concomitant]
     Active Substance: MAGNESIUM OXIDE
     Indication: Constipation
     Dates: start: 20180326, end: 20190323
  6. SENNOSIDES [Concomitant]
     Active Substance: SENNOSIDES
     Indication: Constipation
     Dates: start: 20180326, end: 20190717
  7. PEGFILGRASTIM [Concomitant]
     Active Substance: PEGFILGRASTIM
     Indication: Neutrophil count decreased
     Dates: start: 20180720, end: 20180720
  8. PEGFILGRASTIM [Concomitant]
     Active Substance: PEGFILGRASTIM
     Dates: start: 20180807, end: 20180807
  9. PEGFILGRASTIM [Concomitant]
     Active Substance: PEGFILGRASTIM
     Dates: start: 20180814, end: 20180822
  10. DEXAMETHASONE SODIUM PHOSPHATE [Concomitant]
     Active Substance: DEXAMETHASONE SODIUM PHOSPHATE
     Indication: Premedication
     Route: 042
     Dates: start: 20180718, end: 20180718
  11. DEXAMETHASONE SODIUM PHOSPHATE [Concomitant]
     Active Substance: DEXAMETHASONE SODIUM PHOSPHATE
     Route: 042
     Dates: start: 20180808, end: 20180808
  12. DEXAMETHASONE [Concomitant]
     Active Substance: DEXAMETHASONE
     Indication: Stomatitis
     Dosage: ORAL OINTMENT
     Route: 061
     Dates: start: 20180816
  13. AKADAMA HARAGUSURI S [Concomitant]
     Indication: Abdominal pain
     Dates: start: 20180822, end: 20180822
  14. ALOXI [Concomitant]
     Active Substance: PALONOSETRON HYDROCHLORIDE
     Indication: Premedication
     Dates: start: 20180718, end: 20180718
  15. ALOXI [Concomitant]
     Active Substance: PALONOSETRON HYDROCHLORIDE
     Dates: start: 20180808, end: 20180808
  16. GASTER [Concomitant]
     Active Substance: FAMOTIDINE
     Indication: Premedication
     Dates: start: 20180718, end: 20180718
  17. GASTER [Concomitant]
     Active Substance: FAMOTIDINE
     Dates: start: 20180808, end: 20180808
  18. DIPHENHYDRAMINE [Concomitant]
     Active Substance: DIPHENHYDRAMINE
     Indication: Premedication
     Dates: start: 20180808, end: 20180808
  19. DIPHENHYDRAMINE [Concomitant]
     Active Substance: DIPHENHYDRAMINE
     Dates: start: 20180718, end: 20180718

REACTIONS (1)
  - Febrile neutropenia [Recovered/Resolved]

NARRATIVE: CASE EVENT DATE: 20180814
